FAERS Safety Report 5164962-X (Version None)
Quarter: 2006Q4

REPORT INFORMATION
  Report Type: 
  Country: None (occurrence: None)
  Receive Date: 20061127
  Receipt Date: 20061114
  Transmission Date: 20070319
  Serious: Yes (Death, Other)
  Sender: FDA-Public Use
  Company Number: T200600970

PATIENT
  Age: 60 Year
  Sex: Male
  Weight: 65.8 kg

DRUGS (3)
  1. OPTIRAY 240 [Suspect]
     Indication: COMPUTERISED TOMOGRAM THORAX
     Dosage: 125 ML, SINGLE, INTRAVENOUS
     Route: 042
     Dates: start: 20060831, end: 20060831
  2. HYDROCODONE (HYDROCODONE) [Concomitant]
  3. PREVACID [Concomitant]

REACTIONS (6)
  - ADMINISTRATION SITE REACTION [None]
  - AIR EMBOLISM [None]
  - BRADYCARDIA [None]
  - ELECTROCARDIOGRAM T WAVE INVERSION [None]
  - MEDICATION ERROR [None]
  - RESPIRATORY FAILURE [None]
